FAERS Safety Report 19904520 (Version 1)
Quarter: 2021Q3

REPORT INFORMATION
  Report Type: Spontaneous
  Country: RU (occurrence: RU)
  Receive Date: 20210930
  Receipt Date: 20210930
  Transmission Date: 20211014
  Serious: Yes (Death, Hospitalization, Other)
  Sender: FDA-Public Use
  Company Number: RU-AMGEN-RUSSP2021146471

PATIENT
  Age: 19 Month
  Sex: Female

DRUGS (5)
  1. IDARUBICIN [Concomitant]
     Active Substance: IDARUBICIN
     Dosage: 3.4 MILLIGRAM, QD
  2. AMOXICILLIN. [Concomitant]
     Active Substance: AMOXICILLIN
     Indication: RESPIRATORY TRACT INFECTION
  3. CLAVULANIC ACID [Concomitant]
     Active Substance: CLAVULANIC ACID
     Indication: RESPIRATORY TRACT INFECTION
  4. FILGRASTIM [Suspect]
     Active Substance: FILGRASTIM
     Indication: PROPHYLAXIS
     Route: 065
  5. CYTOSAR [Concomitant]
     Active Substance: CYTARABINE
     Dosage: 245 MILLIGRAM, QD

REACTIONS (52)
  - Pancytopenia [Unknown]
  - Cardiac arrest [Unknown]
  - Ecchymosis [Unknown]
  - Heart rate increased [Unknown]
  - Fibrin D dimer increased [Unknown]
  - Urine output decreased [Unknown]
  - Coagulopathy [Unknown]
  - Pyrexia [Unknown]
  - Neutropenia [Unknown]
  - Erythroblastosis [Unknown]
  - Blood thromboplastin increased [Unknown]
  - Cholelithiasis [Unknown]
  - Metabolic disorder [Unknown]
  - Anaemia [Unknown]
  - Vomiting [Unknown]
  - Disease progression [Fatal]
  - Multiple organ dysfunction syndrome [Unknown]
  - Hypoalbuminaemia [Unknown]
  - Respiratory failure [Unknown]
  - Anuria [Unknown]
  - Catheter site oedema [Unknown]
  - Lymphocytosis [Unknown]
  - Prothrombin time ratio decreased [Unknown]
  - Aplasia [Unknown]
  - Hypophosphataemia [Unknown]
  - Blood urea increased [Unknown]
  - Hypotension [Unknown]
  - Bradyarrhythmia [Unknown]
  - Leukopenia [Unknown]
  - Hyperbilirubinaemia [Unknown]
  - Catheter site erythema [Unknown]
  - C-reactive protein increased [Unknown]
  - Blood glucose increased [Unknown]
  - Serum ferritin increased [Unknown]
  - Thrombocytopenia [Unknown]
  - Device related infection [Unknown]
  - Mucosal inflammation [Unknown]
  - Hypokalaemia [Unknown]
  - Catheter site pain [Unknown]
  - Blood fibrinogen increased [Unknown]
  - Hypoproteinaemia [Unknown]
  - Diarrhoea [Unknown]
  - Hypoxia [Unknown]
  - COVID-19 [Unknown]
  - Hepatic function abnormal [Unknown]
  - Somnolence [Unknown]
  - Crying [Unknown]
  - Hepatosplenomegaly [Unknown]
  - Klebsiella sepsis [Unknown]
  - Faeces discoloured [Unknown]
  - Hyponatraemia [Unknown]
  - Paresis [Unknown]

NARRATIVE: CASE EVENT DATE: 2020
